FAERS Safety Report 4673667-0 (Version None)
Quarter: 2005Q2

REPORT INFORMATION
  Report Type: 
  Country: None (occurrence: None)
  Receive Date: 20050523
  Receipt Date: 20050414
  Transmission Date: 20051028
  Serious: No
  Sender: FDA-Public Use
  Company Number: MED000086

PATIENT
  Age: 16 Year
  Sex: Male

DRUGS (4)
  1. LACTATED RINGER'S [Suspect]
  2. ANCEF [Suspect]
  3. MORPHINE [Concomitant]
  4. PROPOFOL [Concomitant]

REACTIONS (1)
  - INFUSION SITE ERYTHEMA [None]
